FAERS Safety Report 12915906 (Version 3)
Quarter: 2017Q4

REPORT INFORMATION
  Report Type: Spontaneous
  Country: US (occurrence: US)
  Receive Date: 20161104
  Receipt Date: 20171211
  Transmission Date: 20180320
  Serious: Yes (Other)
  Sender: FDA-Public Use
  Company Number: US-CELGENEUS-USA-2015055255

PATIENT

DRUGS (4)
  1. NECUPARANIB [Suspect]
     Active Substance: NECUPARANIB
     Indication: PANCREATIC CARCINOMA METASTATIC
     Dosage: .5 MILLIGRAM/KILOGRAM
     Route: 041
  2. NECUPARANIB [Suspect]
     Active Substance: NECUPARANIB
     Dosage: 5 MILLIGRAM/KILOGRAM
     Route: 058
  3. ABRAXANE [Suspect]
     Active Substance: PACLITAXEL
     Indication: PANCREATIC CARCINOMA METASTATIC
     Dosage: 125 MILLIGRAM/SQ. METER
     Route: 041
  4. GEMCITABINE [Suspect]
     Active Substance: GEMCITABINE\GEMCITABINE HYDROCHLORIDE
     Indication: PANCREATIC CARCINOMA METASTATIC
     Dosage: 1000 MILLIGRAM/SQ. METER
     Route: 041

REACTIONS (18)
  - Cellulitis [Unknown]
  - Aspartate aminotransferase increased [Unknown]
  - Liver function test increased [Unknown]
  - Fatigue [Unknown]
  - Neutropenia [Unknown]
  - Alanine aminotransferase increased [Unknown]
  - Blood alkaline phosphatase decreased [Unknown]
  - Transaminases increased [Unknown]
  - Thrombocytopenia [Unknown]
  - Disease progression [Unknown]
  - Abdominal pain [Unknown]
  - Adverse event [Unknown]
  - Nausea [Unknown]
  - Lymphopenia [Unknown]
  - Activated partial thromboplastin time prolonged [Unknown]
  - Leukopenia [Unknown]
  - Diarrhoea [Unknown]
  - Anaemia [Unknown]
